FAERS Safety Report 8325482-4 (Version None)
Quarter: 2012Q2

REPORT INFORMATION
  Report Type: 
  Country: None (occurrence: None)
  Receive Date: 20120501
  Receipt Date: 20100422
  Transmission Date: 20120825
  Serious: No
  Sender: FDA-Public Use
  Company Number: US-TEVA-2010002356

PATIENT
  Sex: Female
  Weight: 86.26 kg

DRUGS (9)
  1. ASPIRIN [Concomitant]
     Dates: start: 20000101
  2. OSTEOBIFLEX [Concomitant]
     Dates: start: 20100301
  3. PAXIL [Concomitant]
     Indication: DEPRESSION
     Dates: start: 20080101
  4. NUVIGIL [Suspect]
     Indication: SUDDEN ONSET OF SLEEP
  5. SYNTHROID [Concomitant]
     Indication: HYPOTHYROIDISM
     Dates: start: 19910101
  6. COLACE [Concomitant]
     Dosage: 2 MILLIGRAM;
     Dates: start: 20020101
  7. XANAX [Concomitant]
     Dates: start: 20080101
  8. NUVIGIL [Suspect]
     Indication: FATIGUE
     Dosage: 150 MILLIGRAM;
     Route: 048
     Dates: start: 20100414, end: 20100422
  9. MULTI-VITAMINS [Concomitant]

REACTIONS (1)
  - NERVOUSNESS [None]
